FAERS Safety Report 6896508-X (Version None)
Quarter: 2010Q3

REPORT INFORMATION
  Report Type: 
  Country: None (occurrence: None)
  Receive Date: 20100802
  Receipt Date: 20090316
  Transmission Date: 20110219
  Serious: No
  Sender: FDA-Public Use
  Company Number: US-PFIZER INC-2009177011

PATIENT
  Sex: Female
  Weight: 58.5 kg

DRUGS (4)
  1. GABAPENTIN [Suspect]
     Indication: PAIN IN EXTREMITY
     Dosage: 300 MG, UNK
     Route: 048
     Dates: start: 20081105
  2. GABAPENTIN [Suspect]
     Indication: PARAESTHESIA
  3. GABAPENTIN [Suspect]
     Indication: RADICULOPATHY
  4. GABAPENTIN [Suspect]
     Indication: FIBROMYALGIA

REACTIONS (2)
  - DRUG INEFFECTIVE [None]
  - INSOMNIA [None]
